FAERS Safety Report 6148075-6 (Version None)
Quarter: 2009Q2

REPORT INFORMATION
  Report Type: 
  Country: None (occurrence: None)
  Receive Date: 20090408
  Receipt Date: 20090403
  Transmission Date: 20091009
  Serious: Yes (Life-Threatening, Hospitalization)
  Sender: FDA-Public Use
  Company Number: B0567054A

PATIENT
  Sex: Male
  Weight: 15.7 kg

DRUGS (6)
  1. COMBIVIR [Suspect]
     Indication: HIV INFECTION
     Dosage: .5TAB TWICE PER DAY
     Dates: start: 20080902
  2. ABACAVIR [Suspect]
     Indication: HIV INFECTION
     Dosage: 1.5TAB PER DAY
     Dates: start: 20080902
  3. EFAVIRENZ [Suspect]
     Indication: HIV INFECTION
     Dosage: 250MG PER DAY
     Dates: start: 20080902
  4. COTRIMOXAZOLE [Concomitant]
     Dates: start: 20080601
  5. MULTI-VITAMINS [Concomitant]
  6. LAMIVUDINE [Concomitant]
     Dosage: 75MG TWICE PER DAY

REACTIONS (6)
  - ABDOMINAL PAIN [None]
  - ANAEMIA [None]
  - ASTHENIA [None]
  - DRUG TOXICITY [None]
  - PALLOR [None]
  - VOMITING [None]
